FAERS Safety Report 8900708 (Version 1)
Quarter: 2012Q4

REPORT INFORMATION
  Report Type: 
  Country: IT (occurrence: IT)
  Receive Date: 20121109
  Receipt Date: 20121109
  Transmission Date: 20130627
  Serious: Yes (Other)
  Sender: FDA-Public Use
  Company Number: IT-TEVA-367675ISR

PATIENT
  Age: 65 Year
  Sex: Male

DRUGS (1)
  1. AMOXICILLIN W/CLAVULANIC ACID TEVA [Suspect]
     Dosage: 1 dosage unit
     Route: 048
     Dates: start: 20120814, end: 20120814

REACTIONS (4)
  - Bronchospasm [Recovered/Resolved]
  - Tachycardia [Recovered/Resolved]
  - Rash generalised [Recovered/Resolved]
  - Pruritus generalised [Recovered/Resolved]
